FAERS Safety Report 19793472 (Version 2)
Quarter: 2021Q3

REPORT INFORMATION
  Report Type: Spontaneous
  Country: US (occurrence: US)
  Receive Date: 20210906
  Receipt Date: 20210916
  Transmission Date: 20211014
  Serious: Yes (Other)
  Sender: FDA-Public Use
  Company Number: US-PFIZER INC-202101138654

PATIENT
  Age: 47 Year
  Sex: Female

DRUGS (2)
  1. ALDACTONE [Suspect]
     Active Substance: SPIRONOLACTONE
     Dosage: UNK
     Dates: start: 20210731, end: 20210804
  2. ALDACTONE [Suspect]
     Active Substance: SPIRONOLACTONE
     Dosage: 100 MG, 1X/DAY
     Route: 048
     Dates: start: 20210731, end: 20210804

REACTIONS (12)
  - Loss of consciousness [Recovered/Resolved]
  - Feeling abnormal [Recovered/Resolved]
  - Asthenia [Recovered/Resolved]
  - Acne [Not Recovered/Not Resolved]
  - Anger [Unknown]
  - Dizziness [Recovered/Resolved]
  - Skin discomfort [Unknown]
  - Panic attack [Recovered/Resolved]
  - Anxiety [Recovered/Resolved]
  - Fibromyalgia [Unknown]
  - Electrocardiogram abnormal [Unknown]
  - Lung disorder [Unknown]

NARRATIVE: CASE EVENT DATE: 20210801
